FAERS Safety Report 7591722-2 (Version None)
Quarter: 2011Q3

REPORT INFORMATION
  Report Type: 
  Country: None (occurrence: None)
  Receive Date: 20110706
  Receipt Date: 20110620
  Transmission Date: 20111222
  Serious: Yes (Hospitalization)
  Sender: FDA-Public Use
  Company Number: US-BAYER-2011-026047

PATIENT
  Age: 27 Year
  Sex: Female
  Weight: 94.331 kg

DRUGS (8)
  1. IBUPROFEN [Concomitant]
  2. ALPRAZOLAM [Concomitant]
     Indication: ANXIETY
     Dosage: 0.25 MG, BID
     Dates: start: 20080101, end: 20090801
  3. TOPAMAX [Concomitant]
     Dosage: 25 MG, BID
     Dates: start: 20080401
  4. AZITHROMYCIN [Concomitant]
     Dosage: UNK
     Dates: start: 20090101
  5. PROTONIX [Concomitant]
     Indication: GASTROOESOPHAGEAL REFLUX DISEASE
     Dosage: 40 MG, QD
     Dates: start: 20080101
  6. YAZ [Suspect]
     Indication: CONTRACEPTION
     Dosage: UNK
     Route: 048
     Dates: start: 20081106, end: 20090215
  7. CLARITHROMYCIN [Concomitant]
     Dosage: UNK
     Dates: start: 20090101
  8. ORTHO TRI-CYCLEN [Concomitant]
     Dosage: UNK
     Dates: start: 20090201, end: 20090701

REACTIONS (2)
  - GALLBLADDER DISORDER [None]
  - BILIARY DYSKINESIA [None]
